FAERS Safety Report 8649444 (Version 2)
Quarter: 2012Q4

REPORT INFORMATION
  Report Type: 
  Country: BR (occurrence: BR)
  Receive Date: 20120705
  Receipt Date: 20120904
  Transmission Date: 20130627
  Serious: Yes (Other)
  Sender: FDA-Public Use
  Company Number: BR-JNJFOC-20120613894

PATIENT
  Age: 34 None
  Sex: Male
  Weight: 91 kg

DRUGS (3)
  1. REMICADE [Suspect]
     Indication: PSORIASIS
     Route: 042
     Dates: start: 20120621
  2. REMICADE [Suspect]
     Indication: PSORIASIS
     Route: 042
     Dates: start: 20120827
  3. REMICADE [Suspect]
     Indication: PSORIASIS
     Route: 042
     Dates: start: 20110926

REACTIONS (4)
  - Hyperaemia [Recovered/Resolved]
  - Respiratory disorder [Recovered/Resolved]
  - Infusion related reaction [Recovered/Resolved]
  - Adverse event [Unknown]
